FAERS Safety Report 6532258-7 (Version None)
Quarter: 2010Q1

REPORT INFORMATION
  Report Type: 
  Country: None (occurrence: None)
  Receive Date: 20100108
  Receipt Date: 20091230
  Transmission Date: 20100710
  Serious: Yes (Disabling, Other)
  Sender: FDA-Public Use
  Company Number: PHHY2009NO59721

PATIENT
  Sex: Male

DRUGS (4)
  1. ZOMETA [Suspect]
     Indication: PROSTATE CANCER METASTATIC
     Route: 042
     Dates: start: 20070601, end: 20080201
  2. PREDNISOLONE [Concomitant]
     Route: 048
  3. OXYCONTIN [Concomitant]
  4. OXYNORM [Concomitant]

REACTIONS (6)
  - ALVEOLAR OSTEITIS [None]
  - BONE DISORDER [None]
  - OSTEOMYELITIS [None]
  - OSTEONECROSIS [None]
  - PRIMARY SEQUESTRUM [None]
  - TOOTH LOSS [None]
